FAERS Safety Report 10053265 (Version 1)
Quarter: 2014Q2

REPORT INFORMATION
  Report Type: Spontaneous
  Country: IE (occurrence: IE)
  Receive Date: 20140402
  Receipt Date: 20140402
  Transmission Date: 20141212
  Serious: Yes (Life-Threatening, Other)
  Sender: FDA-Public Use
  Company Number: IE-ACTAVIS-2014-05956

PATIENT
  Age: 43 Year
  Sex: Male

DRUGS (1)
  1. CLOBETASOL [Suspect]
     Indication: ECZEMA
     Dosage: 100 G MONTHLY, 0.05%
     Route: 061

REACTIONS (5)
  - Hypothalamic pituitary adrenal axis suppression [Not Recovered/Not Resolved]
  - Hypoglycaemia [Recovered/Resolved]
  - Circulatory collapse [Recovered/Resolved]
  - Skin atrophy [Unknown]
  - Increased tendency to bruise [Unknown]
